FAERS Safety Report 9465059 (Version 2)
Quarter: 2013Q3

REPORT INFORMATION
  Report Type: Report from Study
  Country: AU (occurrence: AU)
  Receive Date: 20130819
  Receipt Date: 20130924
  Transmission Date: 20140515
  Serious: Yes (Hospitalization)
  Sender: FDA-Public Use
  Company Number: AU-TEVA-427225USA

PATIENT
  Age: 72 Year
  Sex: Male
  Weight: 83 kg

DRUGS (13)
  1. BENDAMUSTINE [Suspect]
     Indication: MANTLE CELL LYMPHOMA
     Route: 042
     Dates: start: 20130624
  2. BENDAMUSTINE [Suspect]
     Dosage: REGIMEN # 2
     Route: 042
     Dates: start: 20130723
  3. RITUXIMAB [Suspect]
     Indication: MANTLE CELL LYMPHOMA
     Route: 042
     Dates: start: 20130624
  4. RITUXIMAB [Suspect]
     Dosage: REGIMEN # 2
     Route: 042
     Dates: start: 20130722
  5. IRBUTINIB/PLACEBO [Suspect]
     Indication: MANTLE CELL LYMPHOMA
     Dosage: 560 MILLIGRAM DAILY;
     Route: 048
     Dates: start: 20130624
  6. IRBUTINIB/PLACEBO [Suspect]
     Dosage: 560 MILLIGRAM DAILY;
     Route: 048
     Dates: start: 20130729
  7. LOPERAMIDE [Concomitant]
     Indication: PROPHYLAXIS
     Dates: start: 20130722
  8. ATENOLOL [Concomitant]
     Indication: HYPERTENSION
     Dosage: 50 MILLIGRAM DAILY;
     Dates: start: 2009
  9. RAMIPRIL [Concomitant]
     Indication: HYPERTENSION
     Dosage: 5 MILLIGRAM DAILY;
     Route: 048
     Dates: start: 200906
  10. ROSUVASTATIN [Concomitant]
     Indication: PROPHYLAXIS
     Dosage: 10 MILLIGRAM DAILY;
     Route: 048
     Dates: start: 2009
  11. NAVOBAN [Concomitant]
     Indication: PREMEDICATION
     Dosage: 5 MILLIGRAM DAILY;
     Dates: start: 20130624
  12. NAVOBAN [Concomitant]
     Dosage: 5 MILLIGRAM DAILY;
     Dates: start: 20130722
  13. NAVOBAN [Concomitant]
     Dosage: 5 MILLIGRAM DAILY;
     Dates: start: 20130819

REACTIONS (1)
  - Diverticulitis [Recovered/Resolved]
